FAERS Safety Report 24533467 (Version 1)
Quarter: 2024Q4

REPORT INFORMATION
  Report Type: Spontaneous
  Country: CN (occurrence: CN)
  Receive Date: 20241022
  Receipt Date: 20241022
  Transmission Date: 20250114
  Serious: Yes (Other)
  Sender: PFIZER
  Company Number: CN-PFIZER INC-PV202400135278

PATIENT
  Age: 51 Year
  Sex: Female
  Weight: 60 kg

DRUGS (8)
  1. CYTARABINE [Suspect]
     Active Substance: CYTARABINE
     Indication: Primary myelofibrosis
     Dosage: 25 MG, 2X/DAY
     Route: 058
     Dates: start: 20240612, end: 20240617
  2. CYTARABINE [Suspect]
     Active Substance: CYTARABINE
     Indication: Splenomegaly
  3. OMACETAXINE MEPESUCCINATE [Suspect]
     Active Substance: OMACETAXINE MEPESUCCINATE
     Indication: Primary myelofibrosis
     Dosage: 1 MG, 1X/DAY
     Route: 041
     Dates: start: 20240612, end: 20240621
  4. OMACETAXINE MEPESUCCINATE [Suspect]
     Active Substance: OMACETAXINE MEPESUCCINATE
     Indication: Splenomegaly
  5. DEXTROSE\SODIUM CHLORIDE [Concomitant]
     Active Substance: DEXTROSE\SODIUM CHLORIDE
     Indication: Primary myelofibrosis
     Dosage: 250 ML, 5%
     Dates: start: 20240612
  6. DEXTROSE\SODIUM CHLORIDE [Concomitant]
     Active Substance: DEXTROSE\SODIUM CHLORIDE
     Indication: Splenomegaly
  7. WATER FOR INJECTION [Concomitant]
     Active Substance: WATER
     Indication: Primary myelofibrosis
     Dosage: 1 ML
     Dates: start: 20240612
  8. WATER FOR INJECTION [Concomitant]
     Active Substance: WATER
     Indication: Splenomegaly

REACTIONS (8)
  - Myelosuppression [Recovering/Resolving]
  - Pyrexia [Recovering/Resolving]
  - Erythema [Recovering/Resolving]
  - Peripheral swelling [Recovering/Resolving]
  - Feeling hot [Recovering/Resolving]
  - Pain in extremity [Recovering/Resolving]
  - Soft tissue infection [Unknown]
  - Off label use [Unknown]

NARRATIVE: CASE EVENT DATE: 20240612
